FAERS Safety Report 4609645-7 (Version None)
Quarter: 2005Q1

REPORT INFORMATION
  Report Type: 
  Country: None (occurrence: None)
  Receive Date: 20050314
  Receipt Date: 20050314
  Transmission Date: 20050727
  Serious: Yes (Other)
  Sender: FDA-Public Use
  Company Number: None

PATIENT
  Age: 74 Year
  Sex: Male
  Weight: 63 kg

DRUGS (1)
  1. WARFARIN 1.5 MG BRISTOLS MYERS SQUIB [Suspect]
     Indication: ATRIAL FIBRILLATION
     Dosage: 1.5 MG DAILY ORAL
     Route: 048

REACTIONS (4)
  - BLOOD URINE PRESENT [None]
  - EPISTAXIS [None]
  - MEDICATION ERROR [None]
  - RESPIRATORY DISTRESS [None]
